FAERS Safety Report 13940746 (Version 1)
Quarter: 2017Q3

REPORT INFORMATION
  Report Type: Spontaneous
  Country: FR (occurrence: FR)
  Receive Date: 20170906
  Receipt Date: 20170906
  Transmission Date: 20171127
  Serious: Yes (Life-Threatening, Other)
  Sender: FDA-Public Use
  Company Number: FR-MYLANLABS-2017M1054220

PATIENT
  Age: 67 Year
  Sex: Female

DRUGS (7)
  1. KETAMINE [Suspect]
     Active Substance: KETAMINE
     Indication: ANAESTHESIA
     Dosage: 30 MG, CYCLE
     Route: 042
     Dates: start: 20170808, end: 20170808
  2. ETOMIDATE LIPURO [Suspect]
     Active Substance: ETOMIDATE
     Indication: ANAESTHESIA
     Dosage: 15 MG, CYCLE
     Route: 042
     Dates: start: 20170808, end: 20170808
  3. ATRACURIUM HOSPIRA [Suspect]
     Active Substance: ATRACURIUM
     Indication: ANAESTHESIA
     Dosage: 50 MG, CYCLE
     Route: 042
     Dates: start: 20170808, end: 20170808
  4. MIDAZOLAM [Suspect]
     Active Substance: MIDAZOLAM HYDROCHLORIDE
     Indication: ANAESTHESIA
     Dosage: 4 MG, CYCLE
     Route: 042
     Dates: start: 20170808, end: 20170808
  5. EXACYL [Suspect]
     Active Substance: TRANEXAMIC ACID
     Indication: ANAESTHESIA
     Dosage: 250 MG, CYCLE
     Route: 042
     Dates: start: 20170808, end: 20170808
  6. PROPOFOL. [Concomitant]
     Active Substance: PROPOFOL
     Indication: PRODUCT USED FOR UNKNOWN INDICATION
     Dosage: UNK
  7. SUFENTANIL [Concomitant]
     Active Substance: SUFENTANIL
     Indication: ANAESTHESIA
     Dosage: UNK
     Dates: start: 20170808

REACTIONS (1)
  - Anaphylactic shock [Recovered/Resolved]

NARRATIVE: CASE EVENT DATE: 20170808
